FAERS Safety Report 14174515 (Version 1)
Quarter: 2017Q4

REPORT INFORMATION
  Report Type: Spontaneous
  Country: CN (occurrence: CN)
  Receive Date: 20171109
  Receipt Date: 20171109
  Transmission Date: 20180321
  Serious: Yes (Hospitalization, Other)
  Sender: FDA-Public Use
  Company Number: CN-BRISTOL-MYERS SQUIBB COMPANY-BMS-2017-099771

PATIENT
  Age: 48 Year
  Sex: Male
  Weight: 56 kg

DRUGS (1)
  1. EFAVIRENZ. [Suspect]
     Active Substance: EFAVIRENZ
     Indication: HIV ANTIBODY POSITIVE
     Dosage: 600 MG, QD
     Route: 048
     Dates: start: 20170808, end: 20170818

REACTIONS (5)
  - Dermatitis exfoliative [Recovering/Resolving]
  - Hyperpyrexia [Recovering/Resolving]
  - Nausea [Recovering/Resolving]
  - Hallucination [Recovering/Resolving]
  - Vomiting [Recovering/Resolving]

NARRATIVE: CASE EVENT DATE: 20170813
